FAERS Safety Report 6119869-8 (Version None)
Quarter: 2009Q1

REPORT INFORMATION
  Report Type: 
  Country: None (occurrence: None)
  Receive Date: 20090316
  Receipt Date: 20090303
  Transmission Date: 20090719
  Serious: Yes (Death)
  Sender: FDA-Public Use
  Company Number: JP-ROCHE-620470

PATIENT
  Age: 4 Year
  Sex: Male

DRUGS (2)
  1. TAMIFLU [Suspect]
     Indication: INFLUENZA
     Route: 048
  2. ACETAMINOPHEN [Concomitant]
     Dosage: FORM: ORAL FORMAULATION (NOT OTHERWISE SPECIFIED)
     Route: 048

REACTIONS (1)
  - ENCEPHALOPATHY [None]
